FAERS Safety Report 19391443 (Version 4)
Quarter: 2021Q4

REPORT INFORMATION
  Report Type: Spontaneous
  Country: NO (occurrence: NO)
  Receive Date: 20210609
  Receipt Date: 20211224
  Transmission Date: 20220303
  Serious: Yes (Other)
  Sender: FDA-Public Use
  Company Number: NO-002147023-NVSC2021NO116232

PATIENT
  Age: 35 Year
  Sex: Female

DRUGS (4)
  1. ALENDRONATE SODIUM [Suspect]
     Active Substance: ALENDRONATE SODIUM
     Indication: Product used for unknown indication
     Dosage: UNK
     Route: 065
     Dates: start: 20010101, end: 20210312
  2. VOLTARENE (DICLOFENAC SODIUM) [Suspect]
     Active Substance: DICLOFENAC SODIUM
     Indication: Product used for unknown indication
     Dosage: AS NEEDED
     Route: 065
  3. VENLAFAXINE HYDROCHLORIDE [Suspect]
     Active Substance: VENLAFAXINE HYDROCHLORIDE
     Indication: Product used for unknown indication
     Dosage: UNK
     Route: 065
  4. RITALIN [Suspect]
     Active Substance: METHYLPHENIDATE HYDROCHLORIDE
     Indication: Product used for unknown indication
     Dosage: UNK
     Route: 065

REACTIONS (18)
  - Foot fracture [Unknown]
  - Femur fracture [Unknown]
  - Rib fracture [Unknown]
  - Asthma [Unknown]
  - Wound [Unknown]
  - Osteoarthritis [Unknown]
  - Skin fragility [Unknown]
  - Fear [Unknown]
  - Anxiety [Unknown]
  - Bone disorder [Unknown]
  - Infection [Unknown]
  - Pain [Unknown]
  - Bone density increased [Unknown]
  - Osteoporosis [Unknown]
  - Muscular weakness [Unknown]
  - Depression [Unknown]
  - Quality of life decreased [Unknown]
  - Loose tooth [Unknown]

NARRATIVE: CASE EVENT DATE: 20060101
